FAERS Safety Report 15456782 (Version 1)
Quarter: 2018Q4

REPORT INFORMATION
  Report Type: Spontaneous
  Country: US (occurrence: US)
  Receive Date: 20181002
  Receipt Date: 20181002
  Transmission Date: 20190204
  Serious: No
  Sender: FDA-Public Use
  Company Number: US-GLAXOSMITHKLINE-US2018174623

PATIENT
  Age: 79 Year
  Sex: Female

DRUGS (2)
  1. BREO ELLIPTA [Suspect]
     Active Substance: FLUTICASONE FUROATE\VILANTEROL TRIFENATATE
     Indication: ASTHMA
     Dosage: 1 PUFF(S), QD
     Route: 055
     Dates: start: 2017
  2. ALBUTEROL. [Concomitant]
     Active Substance: ALBUTEROL

REACTIONS (8)
  - Dyspnoea [Recovered/Resolved]
  - Arthralgia [Unknown]
  - Chest discomfort [Recovered/Resolved]
  - Rhinorrhoea [Unknown]
  - Intentional product misuse [Unknown]
  - Chest pain [Recovered/Resolved]
  - Intentional underdose [Unknown]
  - Product dose omission [Unknown]

NARRATIVE: CASE EVENT DATE: 20180924
